FAERS Safety Report 21638664 (Version 1)
Quarter: 2022Q4

REPORT INFORMATION
  Report Type: Spontaneous
  Country: CO (occurrence: CO)
  Receive Date: 20221124
  Receipt Date: 20221124
  Transmission Date: 20230113
  Serious: Yes (Other)
  Sender: FDA-Public Use
  Company Number: CO-SUN PHARMACEUTICAL INDUSTRIES LTD-2022RR-365335

PATIENT
  Age: 23 Year
  Sex: Male

DRUGS (15)
  1. MORPHINE [Suspect]
     Active Substance: MORPHINE
     Indication: Pain
     Dosage: 4 MILLIGRAM, QID WITH 2 MG RESCUE DOSES
     Route: 042
  2. FLUCONAZOLE [Suspect]
     Active Substance: FLUCONAZOLE
     Indication: Eye infection fungal
     Dosage: 200 MILLIGRAM, BID
     Route: 048
  3. GABAPENTIN [Suspect]
     Active Substance: GABAPENTIN
     Indication: Pain
     Dosage: 400 MILLIGRAM EVERY NIGHT
     Route: 048
  4. MOXIFLOXACIN [Suspect]
     Active Substance: MOXIFLOXACIN
     Indication: Ulcerative keratitis
     Dosage: UNK
     Route: 065
  5. CEFAZOLIN [Suspect]
     Active Substance: CEFAZOLIN
     Indication: Ulcerative keratitis
     Dosage: UNK
     Route: 065
  6. VORICONAZOLE [Suspect]
     Active Substance: VORICONAZOLE
     Indication: Ulcerative keratitis
     Dosage: 1 PERCENT EVERY HOUR ON THE FIRST DAY AND THEN EVERY 4 H
     Route: 065
  7. GATIFLOXACIN [Suspect]
     Active Substance: GATIFLOXACIN
     Indication: Ulcerative keratitis
     Dosage: 0.5 PERCENT EVERY HOUR
     Route: 065
  8. SODIUM HYALURONATE [Suspect]
     Active Substance: HYALURONATE SODIUM
     Indication: Ulcerative keratitis
     Dosage: 0.4 PERCENT EVERY HOUR
     Route: 065
  9. SODIUM HYALURONATE [Suspect]
     Active Substance: HYALURONATE SODIUM
     Dosage: 1 PERCENT EVERY 8  H
     Route: 065
  10. ASCORBIC ACID [Suspect]
     Active Substance: ASCORBIC ACID
     Indication: Ulcerative keratitis
     Dosage: EVERY 12 H
     Route: 048
  11. ASCORBIC ACID [Suspect]
     Active Substance: ASCORBIC ACID
     Dosage: 1 G  EVERY 12 H
     Route: 065
  12. AMPHOTERICIN B [Suspect]
     Active Substance: AMPHOTERICIN B
     Indication: Eye infection fungal
     Dosage: UNK
     Route: 065
  13. CYCLOPENTOLATE [Suspect]
     Active Substance: CYCLOPENTOLATE
     Indication: Eye pain
     Dosage: 1 PERCENT EVERY 8  H
     Route: 065
  14. TRAMADOL [Suspect]
     Active Substance: TRAMADOL
     Indication: Pain
     Dosage: UNK
     Route: 065
  15. DIPYRONE [Suspect]
     Active Substance: DIPYRONE
     Indication: Pain
     Dosage: UNK
     Route: 065

REACTIONS (3)
  - Drug dependence [Unknown]
  - Drug ineffective [Unknown]
  - Withdrawal syndrome [Unknown]
